FAERS Safety Report 21117687 (Version 6)
Quarter: 2023Q4

REPORT INFORMATION
  Report Type: Report from Study
  Country: US (occurrence: US)
  Receive Date: 20220722
  Receipt Date: 20231030
  Transmission Date: 20240109
  Serious: Yes (Other)
  Sender: FDA-Public Use
  Company Number: US-Merck Healthcare KGaA-9337516

PATIENT
  Sex: Female
  Weight: 57 kg

DRUGS (4)
  1. REBIF [Suspect]
     Active Substance: INTERFERON BETA-1A
     Indication: Multiple sclerosis
     Dosage: REBIF: REBIF PREFILLED SYRINGE
     Route: 058
     Dates: start: 202102
  2. REBIF [Suspect]
     Active Substance: INTERFERON BETA-1A
     Dosage: WEEK FIRST AND SECOND
     Route: 058
     Dates: start: 20220207
  3. REBIF [Suspect]
     Active Substance: INTERFERON BETA-1A
     Dosage: WEEK THIRD AND FOURTH
     Route: 058
  4. REBIF [Suspect]
     Active Substance: INTERFERON BETA-1A
     Route: 058

REACTIONS (5)
  - Systemic lupus erythematosus [Unknown]
  - Neoplasm malignant [Unknown]
  - Irritable bowel syndrome [Unknown]
  - Oesophageal dilation procedure [Unknown]
  - Weight decreased [Recovering/Resolving]
